FAERS Safety Report 4318413-5 (Version None)
Quarter: 2004Q1

REPORT INFORMATION
  Report Type: 
  Country: None (occurrence: None)
  Receive Date: 20040315
  Receipt Date: 20040304
  Transmission Date: 20041129
  Serious: Yes (Other)
  Sender: FDA-Public Use
  Company Number: GB-JNJFOC-20040301147

PATIENT
  Age: 53 Year
  Sex: Female

DRUGS (1)
  1. DUROGESIC (FENTANYL) PATCH [Suspect]
     Indication: BACK PAIN
     Dosage: 25 UG, TRANSDERMAL
     Route: 062

REACTIONS (3)
  - DEPRESSION [None]
  - DYSPNOEA [None]
  - FATIGUE [None]
